FAERS Safety Report 23038604 (Version 2)
Quarter: 2024Q4

REPORT INFORMATION
  Report Type: Spontaneous
  Country: US (occurrence: US)
  Receive Date: 20231006
  Receipt Date: 20241007
  Transmission Date: 20250115
  Serious: No
  Sender: RECKITT BENCKISER
  Company Number: US-INDIVIOR US-INDV-138928-2023

PATIENT
  Age: 16 Year
  Sex: Male

DRUGS (6)
  1. BUPRENORPHINE [Suspect]
     Active Substance: BUPRENORPHINE
     Indication: Drug use disorder
     Dosage: 300 MILLIGRAM, QMO (HALF IN ABDOMEN AND HALF IN POSTERIOR RIGHT ARM)
     Route: 065
     Dates: start: 20220929
  2. BUPRENORPHINE [Suspect]
     Active Substance: BUPRENORPHINE
  3. BUPRENORPHINE [Suspect]
     Active Substance: BUPRENORPHINE
     Indication: Drug use disorder
     Dosage: 12 MILLIGRAM, QD
     Route: 065
     Dates: start: 202208, end: 202209
  4. FENTANYL [Suspect]
     Active Substance: FENTANYL
     Indication: Product used for unknown indication
     Dosage: UNK
     Route: 065
  5. FENTANYL [Suspect]
     Active Substance: FENTANYL
     Dosage: PART OF PILL FOR 2-3 DAYS
     Route: 065
     Dates: start: 20220927, end: 20220929
  6. FENTANYL [Suspect]
     Active Substance: FENTANYL
     Dosage: 20 PILLS PER DAY, SMOKE
     Route: 055

REACTIONS (8)
  - Off label use [Not Recovered/Not Resolved]
  - Inappropriate schedule of product administration [Recovered/Resolved]
  - Product administered at inappropriate site [Recovered/Resolved]
  - Drug withdrawal syndrome [Recovered/Resolved]
  - Drug dependence [Not Recovered/Not Resolved]
  - Multiple use of single-use product [Recovered/Resolved]
  - Injection site reaction [Unknown]
  - Treatment noncompliance [Recovered/Resolved]

NARRATIVE: CASE EVENT DATE: 20220906
